FAERS Safety Report 11080413 (Version 1)
Quarter: 2015Q2

REPORT INFORMATION
  Report Type: Spontaneous
  Country: US (occurrence: US)
  Receive Date: 20150430
  Receipt Date: 20150430
  Transmission Date: 20150821
  Serious: Yes (Hospitalization, Other)
  Sender: FDA-Public Use
  Company Number: US-ALLERGAN-1507745US

PATIENT
  Age: 53 Year
  Sex: Male
  Weight: 82.54 kg

DRUGS (2)
  1. BOTOX [Suspect]
     Active Substance: ONABOTULINUMTOXINA
     Indication: TORTICOLLIS
     Dosage: UNK, SINGLE
     Route: 030
     Dates: start: 20101222, end: 20101222
  2. BOTOX [Suspect]
     Active Substance: ONABOTULINUMTOXINA
     Dosage: UNK, SINGLE
     Route: 030
     Dates: start: 201203, end: 201203

REACTIONS (9)
  - Gastrointestinal disorder [Not Recovered/Not Resolved]
  - Lymphoma [Unknown]
  - Sarcoma [Unknown]
  - Malaise [Unknown]
  - Weight decreased [Unknown]
  - Vomiting [Recovered/Resolved]
  - Hair growth abnormal [Not Recovered/Not Resolved]
  - Depressed mood [Not Recovered/Not Resolved]
  - Gait disturbance [Unknown]

NARRATIVE: CASE EVENT DATE: 2012
